FAERS Safety Report 14270627 (Version 2)
Quarter: 2018Q3

REPORT INFORMATION
  Report Type: Spontaneous
  Country: SE (occurrence: SE)
  Receive Date: 20171211
  Receipt Date: 20180702
  Transmission Date: 20181010
  Serious: Yes (Disabling, Other)
  Sender: FDA-Public Use
  Company Number: SE-OTSUKA-2015_008238

PATIENT
  Age: 52 Year
  Sex: Female

DRUGS (2)
  1. ABILIFY [Suspect]
     Active Substance: ARIPIPRAZOLE
     Dosage: UNK
     Route: 065
     Dates: start: 201507
  2. ABILIFY [Suspect]
     Active Substance: ARIPIPRAZOLE
     Indication: BIPOLAR DISORDER
     Dosage: 1 DF, UNK
     Route: 065
     Dates: start: 201108, end: 20150701

REACTIONS (3)
  - Leg amputation [Unknown]
  - Pneumonia [Unknown]
  - Embolism venous [Recovered/Resolved with Sequelae]

NARRATIVE: CASE EVENT DATE: 20150210
